FAERS Safety Report 23927831 (Version 1)
Quarter: 2024Q2

REPORT INFORMATION
  Report Type: Spontaneous
  Country: US (occurrence: US)
  Receive Date: 20240531
  Receipt Date: 20240531
  Transmission Date: 20240715
  Serious: No
  Sender: FDA-Public Use
  Company Number: US-RADIUS HEALTH INC.-2023US003584

PATIENT
  Age: 64 Year
  Sex: Female

DRUGS (2)
  1. TYMLOS [Suspect]
     Active Substance: ABALOPARATIDE
     Indication: Senile osteoporosis
     Dosage: 80 MICROGRAM, QD
     Route: 058
     Dates: start: 20230329, end: 20230706
  2. TYMLOS [Suspect]
     Active Substance: ABALOPARATIDE
     Dosage: 80 MICROGRAM, QD
     Route: 058

REACTIONS (6)
  - Condition aggravated [Unknown]
  - Musculoskeletal stiffness [Unknown]
  - Basophil count increased [Unknown]
  - Pain in extremity [Unknown]
  - Blood calcium increased [Unknown]
  - Pain [Unknown]

NARRATIVE: CASE EVENT DATE: 20230601
